FAERS Safety Report 17253518 (Version 1)
Quarter: 2019Q4

REPORT INFORMATION
  Report Type: Spontaneous
  Country: US (occurrence: US)
  Receive Date: 20191216
  Receipt Date: 20191216
  Transmission Date: 20200122
  Serious: No
  Sender: FDA-Public Use
  Company Number: None

PATIENT
  Age: 43 Year
  Sex: Female

DRUGS (3)
  1. TRIKAFTA [Suspect]
     Active Substance: ELEXACAFTOR\IVACAFTOR\TEZACAFTOR
     Dosage: ?          OTHER DOSE:100 50 MG/75MG/150;OTHER FREQUENCY:QAM +QPM;?
     Route: 048
  2. CAYSTON [Concomitant]
     Active Substance: AZTREONAM
  3. TOBRAMYCIN 300MG/5ML [Concomitant]
     Active Substance: TOBRAMYCIN

REACTIONS (2)
  - Therapy cessation [None]
  - Abdominal pain upper [None]

NARRATIVE: CASE EVENT DATE: 2019
